FAERS Safety Report 5754742-6 (Version None)
Quarter: 2008Q2

REPORT INFORMATION
  Report Type: 
  Country: None (occurrence: None)
  Receive Date: 20080527
  Receipt Date: 20080512
  Transmission Date: 20081010
  Serious: Yes (Hospitalization)
  Sender: FDA-Public Use
  Company Number: 028068

PATIENT
  Age: 47 Year
  Sex: Female

DRUGS (3)
  1. INDOMETHACIN [Suspect]
     Indication: OSTEOARTHRITIS
     Dosage: 50 MG, BID,
  2. METOPROLOL TARTRATE [Concomitant]
  3. KETOPROFEN [Concomitant]

REACTIONS (5)
  - ASCITES [None]
  - AUTOIMMUNE HEPATITIS [None]
  - HEPATITIS ACUTE [None]
  - PANCYTOPENIA [None]
  - SPIDER NAEVUS [None]
